FAERS Safety Report 4796864-2 (Version None)
Quarter: 2005Q3

REPORT INFORMATION
  Report Type: 
  Country: None (occurrence: None)
  Receive Date: 20050916
  Receipt Date: 20050128
  Transmission Date: 20060218
  Serious: Yes (Hospitalization)
  Sender: FDA-Public Use
  Company Number: US-JNJFOC-20050200683

PATIENT
  Age: 35 Year
  Sex: Male

DRUGS (4)
  1. TOPAMAX [Suspect]
     Indication: MIGRAINE
     Dosage: 100 MG,   IN 1 DAY,  ORAL
     Route: 048
  2. PAXIL [Concomitant]
  3. CLONAZEPAM [Concomitant]
  4. MAXALT [Concomitant]

REACTIONS (1)
  - NEPHROLITHIASIS [None]
